FAERS Safety Report 5755496-X (Version None)
Quarter: 2008Q2

REPORT INFORMATION
  Report Type: 
  Country: None (occurrence: None)
  Receive Date: 20080528
  Receipt Date: 20080514
  Transmission Date: 20081010
  Serious: Yes (Hospitalization)
  Sender: FDA-Public Use
  Company Number: PAR_02208_2008

PATIENT
  Sex: Female

DRUGS (2)
  1. IPREN (IPREN - IBUPROFEN BAYER) (NOT SPECIFIED) [Suspect]
     Indication: DRUG USE FOR UNKNOWN INDICATION
     Dosage: 1 DF TWO TO THREE TIMES PER DAY ORAL
     Route: 048
     Dates: start: 20070101, end: 20080218
  2. CLOZAPINE [Concomitant]

REACTIONS (3)
  - GASTRITIS [None]
  - HAEMATEMESIS [None]
  - OESOPHAGITIS [None]
